FAERS Safety Report 10078738 (Version 1)
Quarter: 2014Q2

REPORT INFORMATION
  Report Type: Spontaneous
  Country: IT (occurrence: IT)
  Receive Date: 20140415
  Receipt Date: 20140415
  Transmission Date: 20141212
  Serious: Yes (Hospitalization, Other)
  Sender: FDA-Public Use
  Company Number: IT-009507513-1404ITA006551

PATIENT
  Age: 63 Year
  Sex: Male

DRUGS (5)
  1. JANUVIA [Suspect]
     Indication: TYPE 2 DIABETES MELLITUS
     Dosage: 100 MG DAILY
     Route: 048
     Dates: start: 20100929, end: 20120521
  2. ATORVASTATIN [Concomitant]
     Dosage: UNK
  3. DILTIAZEM HYDROCHLORIDE [Concomitant]
     Dosage: UNK
  4. PANTOPRAZOLE [Concomitant]
     Dosage: UNK
  5. GLIMEPIRIDE [Concomitant]
     Dosage: UNK

REACTIONS (1)
  - Adenocarcinoma pancreas [Recovered/Resolved with Sequelae]
